FAERS Safety Report 11730969 (Version 1)
Quarter: 2015Q4

REPORT INFORMATION
  Report Type: Spontaneous
  Country: US (occurrence: US)
  Receive Date: 20151110
  Receipt Date: 20151110
  Transmission Date: 20160304
  Serious: No
  Sender: FDA-Public Use
  Company Number: US-ELI_LILLY_AND_COMPANY-US201202004743

PATIENT
  Sex: Female

DRUGS (1)
  1. FORTEO [Suspect]
     Active Substance: TERIPARATIDE
     Indication: OSTEOPOROSIS
     Dosage: 20 UG, QD
     Route: 065

REACTIONS (10)
  - Inflammation [Unknown]
  - Injection site rash [Unknown]
  - Liver disorder [Unknown]
  - Mass [Unknown]
  - Rash [Unknown]
  - Abdominal distension [Unknown]
  - Feeling hot [Unknown]
  - Injection site erythema [Unknown]
  - Constipation [Unknown]
  - Drug administered at inappropriate site [Unknown]
